FAERS Safety Report 11339872 (Version 1)
Quarter: 2015Q3

REPORT INFORMATION
  Report Type: Report from Study
  Country: US (occurrence: US)
  Receive Date: 20150805
  Receipt Date: 20150805
  Transmission Date: 20151125
  Serious: Yes (Hospitalization, Other)
  Sender: FDA-Public Use
  Company Number: US-GILEAD-2015-0162527

PATIENT
  Age: 45 Year
  Sex: Male

DRUGS (17)
  1. FOLIC ACID. [Concomitant]
     Active Substance: FOLIC ACID
  2. SEROQUEL [Concomitant]
     Active Substance: QUETIAPINE FUMARATE
  3. LASIX [Concomitant]
     Active Substance: FUROSEMIDE
  4. COUMADIN [Concomitant]
     Active Substance: WARFARIN SODIUM
  5. FUROSEMIDE. [Concomitant]
     Active Substance: FUROSEMIDE
  6. VANCOMYCIN [Concomitant]
     Active Substance: VANCOMYCIN
  7. HYDROCODONE [Concomitant]
     Active Substance: HYDROCODONE
  8. AMBRISENTAN [Suspect]
     Active Substance: AMBRISENTAN
     Indication: PULMONARY ARTERIAL HYPERTENSION
     Dosage: 10 MG, QD
     Route: 065
     Dates: start: 20150422
  9. ADCIRCA [Suspect]
     Active Substance: TADALAFIL
     Indication: PRODUCT USED FOR UNKNOWN INDICATION
     Route: 065
  10. LEVOTHYROXINE. [Concomitant]
     Active Substance: LEVOTHYROXINE
  11. SIMVASTATIN. [Concomitant]
     Active Substance: SIMVASTATIN
  12. DOCQLACE [Concomitant]
     Active Substance: DOCUSATE SODIUM
  13. METRONIDAZOLE. [Concomitant]
     Active Substance: METRONIDAZOLE
  14. VITAMIN B12 [Concomitant]
     Active Substance: CYANOCOBALAMIN
  15. WARFARIN [Concomitant]
     Active Substance: WARFARIN
  16. LISINOPRIL. [Concomitant]
     Active Substance: LISINOPRIL
  17. VITAMIN B-1 [Concomitant]

REACTIONS (7)
  - Oedema [Unknown]
  - Cardiac failure congestive [Unknown]
  - Fluid overload [Unknown]
  - Urinary retention [Unknown]
  - Atrial fibrillation [Unknown]
  - Cerebrovascular accident [Unknown]
  - Chronic hepatic failure [Unknown]

NARRATIVE: CASE EVENT DATE: 20150722
